FAERS Safety Report 23658493 (Version 1)
Quarter: 2024Q1

REPORT INFORMATION
  Report Type: Report from Study
  Country: US (occurrence: US)
  Receive Date: 20240321
  Receipt Date: 20240321
  Transmission Date: 20240409
  Serious: Yes (Other)
  Sender: FDA-Public Use
  Company Number: US-OTSUKA-2022_039487

PATIENT
  Sex: Female
  Weight: 42.5 kg

DRUGS (2)
  1. CEDAZURIDINE\DECITABINE [Suspect]
     Active Substance: CEDAZURIDINE\DECITABINE
     Indication: Chronic myelomonocytic leukaemia
     Dosage: 1 DF (35 MG DECITABINE + 100 MG CEDAZURIDINE), QD (DAYS 1-5 OF EACH 28 DAY CYCLE)
     Route: 048
     Dates: start: 20220712
  2. CEDAZURIDINE\DECITABINE [Suspect]
     Active Substance: CEDAZURIDINE\DECITABINE
     Dosage: 1 DF (35 MG DECITABINE + 100 MG CEDAZURIDINE), QD (ON DAYS 1 TO 4) OF EACH 28 DAY CYCLE (CYCLE 5)
     Route: 048

REACTIONS (12)
  - Pericardial effusion [Not Recovered/Not Resolved]
  - Bronchitis [Not Recovered/Not Resolved]
  - Platelet count decreased [Unknown]
  - Vision blurred [Unknown]
  - Visual impairment [Not Recovered/Not Resolved]
  - Osteoporosis [Unknown]
  - Pruritus [Not Recovered/Not Resolved]
  - Full blood count abnormal [Not Recovered/Not Resolved]
  - Immune system disorder [Not Recovered/Not Resolved]
  - Hypotension [Unknown]
  - Nasopharyngitis [Unknown]
  - Product blister packaging issue [Unknown]
